FAERS Safety Report 13548246 (Version 1)
Quarter: 2017Q2

REPORT INFORMATION
  Report Type: Spontaneous
  Country: US (occurrence: US)
  Receive Date: 20170516
  Receipt Date: 20170516
  Transmission Date: 20170830
  Serious: No
  Sender: FDA-Public Use
  Company Number: US-JNJFOC-20170312101

PATIENT
  Age: 50 Year
  Sex: Female
  Weight: 73.48 kg

DRUGS (2)
  1. MENS ROGAINE EXTRA STRENGTH [Suspect]
     Active Substance: MINOXIDIL
     Route: 061
  2. MENS ROGAINE EXTRA STRENGTH [Suspect]
     Active Substance: MINOXIDIL
     Indication: ALOPECIA
     Dosage: MORE THAN HALF CAPFUL AMOUNT
     Route: 061

REACTIONS (3)
  - Product use issue [Unknown]
  - Product quality issue [Unknown]
  - Intentional product misuse [Unknown]
